FAERS Safety Report 6733517-5 (Version None)
Quarter: 2010Q2

REPORT INFORMATION
  Report Type: 
  Country: None (occurrence: None)
  Receive Date: 20100520
  Receipt Date: 20100419
  Transmission Date: 20101027
  Serious: No
  Sender: FDA-Public Use
  Company Number: US-BAYER-201014480BCC

PATIENT
  Age: 58 Year
  Sex: Male
  Weight: 75 kg

DRUGS (4)
  1. ALEVE (CAPLET) [Suspect]
     Indication: BACK PAIN
     Dosage: TOTAL DAILY DOSE: 220 MG  UNIT DOSE: 220 MG
     Route: 048
     Dates: start: 20100416
  2. SIMVASTATIN [Concomitant]
     Route: 065
  3. PHENOBARBITAL TAB [Concomitant]
     Route: 065
  4. QUALITY CHOICE LOW DOSE 81MG BABY ASPIRIN [Concomitant]
     Route: 065

REACTIONS (2)
  - INSOMNIA [None]
  - SOMNOLENCE [None]
